FAERS Safety Report 24413212 (Version 5)
Quarter: 2025Q1

REPORT INFORMATION
  Report Type: Spontaneous
  Country: US (occurrence: US)
  Receive Date: 20241008
  Receipt Date: 20250331
  Transmission Date: 20250409
  Serious: No
  Sender: SANOFI AVENTIS
  Company Number: US-SA-2024SA289654

PATIENT
  Age: 60 Year
  Sex: Female
  Weight: 93.44 kg

DRUGS (20)
  1. DUPIXENT [Suspect]
     Active Substance: DUPILUMAB
     Indication: Dermatitis atopic
     Dosage: 300 MG, QOW
     Route: 058
  2. DUPIXENT [Suspect]
     Active Substance: DUPILUMAB
     Indication: Asthma
  3. CLOBETASOL PROPIONATE [Concomitant]
     Active Substance: CLOBETASOL PROPIONATE
  4. HYDROCORTISONE [Concomitant]
     Active Substance: HYDROCORTISONE
  5. MUPIROCIN [Concomitant]
     Active Substance: MUPIROCIN
  6. TRETINOIN [Concomitant]
     Active Substance: TRETINOIN
  7. CLEOCIN T [Concomitant]
     Active Substance: CLINDAMYCIN PHOSPHATE
  8. VITAMIN D3 [Concomitant]
     Active Substance: CHOLECALCIFEROL
  9. DULOXETINE HYDROCHLORIDE [Concomitant]
     Active Substance: DULOXETINE HYDROCHLORIDE
  10. CELEBREX [Concomitant]
     Active Substance: CELECOXIB
  11. METOPROLOL SUCCINATE [Concomitant]
     Active Substance: METOPROLOL SUCCINATE
  12. DOXAZOSIN MESYLATE [Concomitant]
     Active Substance: DOXAZOSIN MESYLATE
  13. LEVOTHYROXINE SODIUM [Concomitant]
     Active Substance: LEVOTHYROXINE SODIUM
  14. AMLODIPINE BESYLATE [Concomitant]
     Active Substance: AMLODIPINE BESYLATE
  15. PROTONIX [Concomitant]
     Active Substance: PANTOPRAZOLE SODIUM
  16. OMEPRAZOLE [Concomitant]
     Active Substance: OMEPRAZOLE
  17. SUPER B COMPLEX [ASCORBIC ACID;BIOTIN;CYANOCOBALAMIN;FOLIC ACID;NICOTI [Concomitant]
  18. OZEMPIC [Concomitant]
     Active Substance: SEMAGLUTIDE
  19. NAC [ACETYLCYSTEINE;SELENOMETHIONINE;SODIUM MOLYBDATE] [Concomitant]
  20. APPLE CIDER VINEGAR [Concomitant]
     Active Substance: APPLE CIDER VINEGAR

REACTIONS (12)
  - Nausea [Unknown]
  - Hyperhidrosis [Unknown]
  - Malaise [Unknown]
  - Dyspnoea [Unknown]
  - Confusional state [Unknown]
  - Skin lesion [Unknown]
  - Condition aggravated [Unknown]
  - Pain [Unknown]
  - Vertigo [Unknown]
  - Pruritus [Not Recovered/Not Resolved]
  - Drug ineffective [Unknown]
  - Rash [Unknown]

NARRATIVE: CASE EVENT DATE: 20240101
